FAERS Safety Report 11580385 (Version 1)
Quarter: 2015Q3

REPORT INFORMATION
  Report Type: Spontaneous
  Country: US (occurrence: US)
  Receive Date: 20150916
  Receipt Date: 20150916
  Transmission Date: 20151125
  Serious: No
  Sender: FDA-Public Use
  Company Number: US-ELI_LILLY_AND_COMPANY-US200804004862

PATIENT
  Age: 61 Year
  Sex: Female
  Weight: 77.1 kg

DRUGS (7)
  1. HYDROXYCHLOROQUINE PHOSPHATE [Concomitant]
     Active Substance: HYDROXYCHLOROQUINE DIPHOSPHATE
  2. PARACETAMOL [Concomitant]
     Active Substance: ACETAMINOPHEN
     Dosage: UNK, AS NEEDED
  3. FORTEO [Suspect]
     Active Substance: TERIPARATIDE
     Indication: OSTEOARTHRITIS
     Dates: start: 20070409
  4. AZATHIOPRINE. [Concomitant]
     Active Substance: AZATHIOPRINE
  5. HUMIRA /USA/ [Concomitant]
     Indication: RHEUMATOID ARTHRITIS
     Dosage: 40 MG, OTHER
     Route: 058
     Dates: start: 20070412
  6. LOSARTAN POTASSIUM. [Concomitant]
     Active Substance: LOSARTAN POTASSIUM
     Indication: BLOOD PRESSURE MEASUREMENT
  7. FUROSEMIDE. [Concomitant]
     Active Substance: FUROSEMIDE
     Dosage: 40 MG, DAILY (1/D)

REACTIONS (4)
  - Bone pain [Recovering/Resolving]
  - Peripheral swelling [Not Recovered/Not Resolved]
  - Systemic lupus erythematosus [Not Recovered/Not Resolved]
  - Arthralgia [Recovering/Resolving]

NARRATIVE: CASE EVENT DATE: 20070412
